FAERS Safety Report 10723486 (Version 1)
Quarter: 2015Q1

REPORT INFORMATION
  Report Type: Spontaneous
  Country: US (occurrence: None)
  Receive Date: 20150114
  Receipt Date: 20150114
  Transmission Date: 20150721
  Serious: Yes (Death, Hospitalization, Other)
  Sender: FDA-Public Use
  Company Number: 2014SCAL000265

PATIENT
  Age: 26 Year
  Sex: Male

DRUGS (3)
  1. METOPROLOL TARTRATE. [Suspect]
     Active Substance: METOPROLOL TARTRATE
     Indication: HYPERTENSION
  2. AMLODIPINE [Suspect]
     Active Substance: AMLODIPINE BESYLATE
     Indication: HYPERTENSION
  3. LISINOPRIL (LISINOPRIL) [Suspect]
     Active Substance: LISINOPRIL
     Indication: HYPERTENSION

REACTIONS (11)
  - Bradycardia [None]
  - Intentional overdose [None]
  - Pulmonary oedema [None]
  - Hypotension [None]
  - Acute respiratory failure [None]
  - Acidosis [None]
  - Fluid overload [None]
  - Haemodynamic instability [None]
  - Hyperlipidaemia [None]
  - Acute kidney injury [None]
  - Blood glucose increased [None]
